FAERS Safety Report 9710236 (Version 1)
Quarter: 2013Q4

REPORT INFORMATION
  Report Type: Spontaneous
  Country: US (occurrence: US)
  Receive Date: 20131126
  Receipt Date: 20131126
  Transmission Date: 20140711
  Serious: No
  Sender: FDA-Public Use
  Company Number: US-JNJFOC-20131107021

PATIENT
  Age: 26 Year
  Sex: Male
  Weight: 164.2 kg

DRUGS (3)
  1. DURAGESIC [Suspect]
     Indication: SURGERY
     Route: 062
     Dates: start: 20131109
  2. DURAGESIC [Suspect]
     Indication: TARSAL TUNNEL SYNDROME
     Route: 062
     Dates: start: 20131109
  3. DURAGESIC [Suspect]
     Indication: PAIN IN EXTREMITY
     Route: 062
     Dates: start: 20131109

REACTIONS (3)
  - Nausea [Not Recovered/Not Resolved]
  - Wrong technique in drug usage process [Unknown]
  - Product quality issue [Unknown]
